FAERS Safety Report 16292674 (Version 1)
Quarter: 2019Q2

REPORT INFORMATION
  Report Type: Spontaneous
  Country: TR (occurrence: TR)
  Receive Date: 20190509
  Receipt Date: 20190509
  Transmission Date: 20190711
  Serious: Yes (Hospitalization, Other)
  Sender: FDA-Public Use
  Company Number: TR-ELI_LILLY_AND_COMPANY-TR201905001445

PATIENT
  Age: 54 Year
  Sex: Male

DRUGS (1)
  1. OLANZAPINE 10MG [Suspect]
     Active Substance: OLANZAPINE
     Indication: PRODUCT USED FOR UNKNOWN INDICATION
     Dosage: 10 MG, UNKNOWN
     Route: 065

REACTIONS (3)
  - Ileus paralytic [Recovering/Resolving]
  - Respiratory distress [Recovering/Resolving]
  - Acute kidney injury [Recovering/Resolving]
